FAERS Safety Report 4483456-8 (Version None)
Quarter: 2004Q4

REPORT INFORMATION
  Report Type: 
  Country: None (occurrence: None)
  Receive Date: 20041020
  Receipt Date: 20041005
  Transmission Date: 20050328
  Serious: Yes (Hospitalization)
  Sender: FDA-Public Use
  Company Number: 2004-BP-07063BP

PATIENT
  Age: 67 Year
  Sex: Female

DRUGS (9)
  1. SPIRIVA [Suspect]
     Indication: CHRONIC OBSTRUCTIVE AIRWAYS DISEASE
     Dosage: 18 MCG (18 MCG) IH
     Dates: start: 20040816
  2. XANAX [Suspect]
     Indication: BONE PAIN
     Dosage: 1 MG 0.25 MG OID, PO
     Route: 048
     Dates: end: 20040815
  3. VENTOLIN [Concomitant]
  4. FLOVENT [Concomitant]
  5. AMARYL [Concomitant]
  6. PLAVIX [Concomitant]
  7. PRINIVIL [Concomitant]
  8. TOPROL-XL [Concomitant]
  9. DARVOCET [Concomitant]

REACTIONS (7)
  - ASTHMA [None]
  - CHRONIC OBSTRUCTIVE AIRWAYS DISEASE [None]
  - CONSTIPATION [None]
  - DIARRHOEA [None]
  - DYSPNOEA [None]
  - EMPHYSEMA [None]
  - TREMOR [None]
